FAERS Safety Report 13236614 (Version 1)
Quarter: 2017Q1

REPORT INFORMATION
  Report Type: Spontaneous
  Country: NP (occurrence: NP)
  Receive Date: 20170215
  Receipt Date: 20170215
  Transmission Date: 20170428
  Serious: Yes (Other)
  Sender: FDA-Public Use
  Company Number: NP-B.I. PHARMACEUTICALS,INC./RIDGEFIELD-2017-BI-008021

PATIENT
  Sex: Male
  Weight: 2.09 kg

DRUGS (3)
  1. BUSCO IBUPROFEN [Suspect]
     Active Substance: IBUPROFEN
     Indication: PROPHYLAXIS
     Dosage: FORM STRENGTH: 10MG/KG
     Route: 048
  2. BUSCO RANITIDINE [Suspect]
     Active Substance: RANITIDINE HYDROCHLORIDE
     Route: 065
  3. BUSCO RANITIDINE [Suspect]
     Active Substance: RANITIDINE HYDROCHLORIDE
     Indication: STRESS ULCER
     Route: 065

REACTIONS (2)
  - Cerebral atrophy [Unknown]
  - Stress ulcer [Recovered/Resolved]
